FAERS Safety Report 4809081-4 (Version None)
Quarter: 2005Q4

REPORT INFORMATION
  Report Type: 
  Country: None (occurrence: None)
  Receive Date: 20051024
  Receipt Date: 20051024
  Transmission Date: 20060501
  Serious: Yes (Hospitalization)
  Sender: FDA-Public Use
  Company Number: None

PATIENT
  Age: 43 Year
  Sex: Female
  Weight: 79.3795 kg

DRUGS (2)
  1. VIOXX [Suspect]
     Indication: LIMB INJURY
     Dosage: 1 TWICE A DAY
     Dates: start: 20050516
  2. VIOXX [Suspect]
     Indication: LIMB INJURY
     Dosage: 1 TWICE A DAY
     Dates: start: 20050611

REACTIONS (1)
  - PAIN IN EXTREMITY [None]
